FAERS Safety Report 25760532 (Version 2)
Quarter: 2025Q4

REPORT INFORMATION
  Report Type: Report from Study
  Country: US (occurrence: US)
  Receive Date: 20250904
  Receipt Date: 20251016
  Transmission Date: 20260117
  Serious: Yes (Other)
  Sender: EISAI
  Company Number: US-Eisai-EC-2025-195965

PATIENT
  Age: 70 Year
  Sex: Female
  Weight: 84.1 kg

DRUGS (9)
  1. LECANEMAB [Suspect]
     Active Substance: LECANEMAB
     Indication: Dementia Alzheimer^s type
     Route: 042
     Dates: start: 20240920, end: 20241018
  2. LECANEMAB [Suspect]
     Active Substance: LECANEMAB
     Route: 042
     Dates: start: 20241101
  3. TRAZODONE [Concomitant]
     Active Substance: TRAZODONE HYDROCHLORIDE
     Indication: Product used for unknown indication
     Route: 048
     Dates: start: 201405
  4. PANTOPRAZOLE [Concomitant]
     Active Substance: PANTOPRAZOLE
     Indication: Gastrooesophageal reflux disease
     Route: 048
     Dates: start: 201612
  5. PRAVASTATIN [Concomitant]
     Active Substance: PRAVASTATIN
     Indication: Product used for unknown indication
     Route: 048
     Dates: start: 202202
  6. DONEPEZIL [Concomitant]
     Active Substance: DONEPEZIL
     Indication: Dementia Alzheimer^s type
     Route: 048
     Dates: start: 202404
  7. MELATONIN [Concomitant]
     Active Substance: MELATONIN
     Indication: Product used for unknown indication
     Route: 048
     Dates: start: 202407
  8. ALPRAZOLAM [Concomitant]
     Active Substance: ALPRAZOLAM
     Indication: Product used for unknown indication
     Route: 048
     Dates: start: 202407, end: 202504
  9. SERTRALINE [Concomitant]
     Active Substance: SERTRALINE HYDROCHLORIDE
     Indication: Product used for unknown indication
     Route: 048
     Dates: start: 202408

REACTIONS (1)
  - Amyloid related imaging abnormality-oedema/effusion [Recovered/Resolved]

NARRATIVE: CASE EVENT DATE: 20241108
